FAERS Safety Report 19614544 (Version 1)
Quarter: 2021Q3

REPORT INFORMATION
  Report Type: Spontaneous
  Country: GB (occurrence: GB)
  Receive Date: 20210727
  Receipt Date: 20210727
  Transmission Date: 20211014
  Serious: Yes (Other)
  Sender: FDA-Public Use
  Company Number: GB-PFIZER INC-2021888480

PATIENT
  Age: 29 Year
  Sex: Female

DRUGS (11)
  1. MAGNESIUM SULPHATE [MAGNESIUM SULFATE] [Suspect]
     Active Substance: MAGNESIUM SULFATE
     Indication: MUSCLE SPASMS
     Dosage: 5 G (PLUS A CONTINUOUS INFUSION)
     Route: 040
  2. PANCURONIUM BROMIDE. [Suspect]
     Active Substance: PANCURONIUM BROMIDE
     Indication: MUSCLE SPASMS
     Dosage: UNK
  3. TETANUS IMMUNOGLOBULIN [Concomitant]
     Active Substance: HUMAN CLOSTRIDIUM TETANI TOXOID IMMUNE GLOBULIN
     Indication: TETANUS
     Dosage: UNK
  4. PROPOFOL. [Suspect]
     Active Substance: PROPOFOL
     Indication: MUSCLE SPASMS
     Dosage: UNK
  5. DANTROLENE. [Suspect]
     Active Substance: DANTROLENE SODIUM
     Indication: MUSCLE SPASMS
     Dosage: UNK
  6. ATRACURIUM BESILATE [Suspect]
     Active Substance: ATRACURIUM BESYLATE
     Indication: MUSCLE SPASMS
     Dosage: UNK
  7. SUXAMETHONIUM [Concomitant]
     Active Substance: SUCCINYLCHOLINE
     Dosage: UNK
  8. BACLOFEN. [Suspect]
     Active Substance: BACLOFEN
     Indication: MUSCLE SPASMS
     Dosage: 250 UG (ADMINISTERED VIA THE INTRATHECAL CATHETER)
     Route: 039
  9. BACLOFEN. [Suspect]
     Active Substance: BACLOFEN
     Dosage: 1000 UG, 1X/DAY (ADMINISTERED FOR THE NEXT TWO DAYS)
  10. MIDAZOLAM. [Suspect]
     Active Substance: MIDAZOLAM
     Indication: MUSCLE SPASMS
     Dosage: UNK
  11. METRONIDAZOLE. [Concomitant]
     Active Substance: METRONIDAZOLE
     Indication: TETANUS
     Dosage: 500 MG, 4X/DAY
     Route: 042

REACTIONS (1)
  - Drug ineffective [Recovering/Resolving]
